FAERS Safety Report 18814566 (Version 1)
Quarter: 2021Q1

REPORT INFORMATION
  Report Type: Spontaneous
  Country: US (occurrence: US)
  Receive Date: 20210129
  Receipt Date: 20210129
  Transmission Date: 20210419
  Serious: No
  Sender: FDA-Public Use
  Company Number: None

PATIENT
  Sex: Male

DRUGS (1)
  1. IMATINIB MESYLATE 400MG TABLETS [Suspect]
     Active Substance: IMATINIB MESYLATE

REACTIONS (2)
  - Drug intolerance [None]
  - Product size issue [None]
